FAERS Safety Report 8863703 (Version 1)
Quarter: 2012Q4

REPORT INFORMATION
  Report Type: 
  Country: US (occurrence: US)
  Receive Date: 20121024
  Receipt Date: 20121024
  Transmission Date: 20130627
  Serious: No
  Sender: FDA-Public Use
  Company Number: US-AMGEN-USASP2011063581

PATIENT
  Sex: Female

DRUGS (5)
  1. ENBREL [Suspect]
     Indication: PRODUCT USED FOR UNKNOWN INDICATION
     Dosage: 50 mg, qwk
  2. ALLEGRA [Concomitant]
     Dosage: 30 mg, UNK
  3. LEFLUNOMIDE [Concomitant]
     Dosage: 10 mg, UNK
  4. CALCIUM +D                         /00188401/ [Concomitant]
  5. PRILOSEC                           /00661201/ [Concomitant]
     Dosage: 20 mg, UNK

REACTIONS (1)
  - Pruritus generalised [Unknown]
